FAERS Safety Report 8459300-0 (Version None)
Quarter: 2012Q2

REPORT INFORMATION
  Report Type: 
  Country: None (occurrence: None)
  Receive Date: 20120622
  Receipt Date: 20120621
  Transmission Date: 20120825
  Serious: Yes (Disabling, Other)
  Sender: FDA-Public Use
  Company Number: US-ROCHE-794040

PATIENT
  Sex: Female
  Weight: 72.64 kg

DRUGS (5)
  1. ASCORBIC ACID [Concomitant]
  2. ACETAMINOPHEN/HYDROCODONE BITARTRATE [Concomitant]
  3. ACCUTANE [Suspect]
     Indication: ACNE
     Route: 065
     Dates: start: 20071101, end: 20080430
  4. ONDANSETRON [Concomitant]
  5. SEPTRA DS [Concomitant]

REACTIONS (17)
  - INFLAMMATORY BOWEL DISEASE [None]
  - POST-TRAUMATIC STRESS DISORDER [None]
  - AFFECTIVE DISORDER [None]
  - DERMATITIS [None]
  - HEADACHE [None]
  - PELVIC PAIN [None]
  - IRRITABLE BOWEL SYNDROME [None]
  - SUICIDAL IDEATION [None]
  - HOT FLUSH [None]
  - JOINT SWELLING [None]
  - ABDOMINAL PAIN [None]
  - DEPRESSION [None]
  - PALPITATIONS [None]
  - NAUSEA [None]
  - ARTHRALGIA [None]
  - INSOMNIA [None]
  - DYSURIA [None]
